FAERS Safety Report 25681159 (Version 1)
Quarter: 2025Q3

REPORT INFORMATION
  Report Type: Spontaneous
  Country: US (occurrence: None)
  Receive Date: 20250813
  Receipt Date: 20250813
  Transmission Date: 20251020
  Serious: Yes (Other)
  Sender: FDA-CTU
  Company Number: None

PATIENT
  Age: 55 Year
  Sex: Male
  Weight: 127.98 kg

DRUGS (10)
  1. ACTEMRA ACTPEN [Suspect]
     Active Substance: TOCILIZUMAB
     Indication: Rheumatoid arthritis
     Route: 058
     Dates: start: 20250317
  2. Diclofenac sodium 1 % Gel [Concomitant]
  3. LEFLUNOMIDE [Concomitant]
     Active Substance: LEFLUNOMIDE
  4. PREDNISONE [Concomitant]
     Active Substance: PREDNISONE
  5. MEDROL [Concomitant]
     Active Substance: METHYLPREDNISOLONE
  6. levothryoxine 50 mcg [Concomitant]
  7. GABAPENTIN [Concomitant]
     Active Substance: GABAPENTIN
  8. OMEPRAZOLE [Concomitant]
     Active Substance: OMEPRAZOLE
  9. Oxycodone-Acetaminophen 2.5/325 mg [Concomitant]
  10. TIZANIDINE [Concomitant]
     Active Substance: TIZANIDINE

REACTIONS (3)
  - Furuncle [None]
  - Furuncle [None]
  - Secretion discharge [None]

NARRATIVE: CASE EVENT DATE: 20250813
